FAERS Safety Report 7857253-7 (Version None)
Quarter: 2011Q4

REPORT INFORMATION
  Report Type: 
  Country: None (occurrence: None)
  Receive Date: 20111027
  Receipt Date: 20111017
  Transmission Date: 20120403
  Serious: Yes (Other)
  Sender: FDA-Public Use
  Company Number: BR-BIOGENIDEC-2011BI022679

PATIENT
  Age: 63 Year
  Sex: Male

DRUGS (2)
  1. AVONEX [Suspect]
     Indication: MULTIPLE SCLEROSIS
     Route: 030
     Dates: start: 20110610, end: 20110101
  2. AVONEX [Suspect]
     Route: 030
     Dates: start: 20110101, end: 20110801

REACTIONS (10)
  - HEMIPLEGIA [None]
  - DYSURIA [None]
  - CHILLS [None]
  - COORDINATION ABNORMAL [None]
  - CEREBROVASCULAR ACCIDENT [None]
  - SPEECH DISORDER [None]
  - PYREXIA [None]
  - DISTURBANCE IN ATTENTION [None]
  - ABASIA [None]
  - MUSCULAR WEAKNESS [None]
